FAERS Safety Report 7237406-1 (Version None)
Quarter: 2011Q1

REPORT INFORMATION
  Report Type: 
  Country: None (occurrence: None)
  Receive Date: 20110121
  Receipt Date: 20110117
  Transmission Date: 20110831
  Serious: Yes (Other)
  Sender: FDA-Public Use
  Company Number: GB-PFIZER INC-2010145558

PATIENT
  Age: 49 Year
  Sex: Male
  Weight: 106 kg

DRUGS (7)
  1. METFORMIN [Concomitant]
     Indication: TYPE 2 DIABETES MELLITUS
     Dosage: 1 G, 2X/DAY
     Route: 048
     Dates: start: 19970129
  2. ADIZEM-XL [Concomitant]
     Indication: HYPERTENSION
     Dosage: 240 MG, 1X/DAY
     Route: 048
     Dates: start: 20021114
  3. RAMIPRIL [Concomitant]
     Indication: HYPERTENSION
     Dosage: 10 MG, UNK
     Route: 048
     Dates: start: 20021119
  4. HUMALOG [Concomitant]
     Indication: DIABETES MELLITUS
     Dosage: UNK
     Route: 058
     Dates: start: 20000510
  5. DOXAZOSIN MESYLATE [Suspect]
     Indication: HYPERTENSION
     Dosage: 1 MG, 1X/DAY
     Route: 048
     Dates: start: 20100816, end: 20100901
  6. DOXAZOSIN MESYLATE [Suspect]
     Dosage: 2 MG, 1X/DAY
     Route: 048
     Dates: start: 20100922
  7. ATORVASTATIN [Concomitant]
     Indication: MIXED HYPERLIPIDAEMIA
     Dosage: 20 MG, UNK
     Route: 048
     Dates: start: 20051014

REACTIONS (7)
  - NECK PAIN [None]
  - AURA [None]
  - LETHARGY [None]
  - MUSCULOSKELETAL STIFFNESS [None]
  - FACE OEDEMA [None]
  - FATIGUE [None]
  - TUNNEL VISION [None]
